FAERS Safety Report 19456437 (Version 1)
Quarter: 2021Q2

REPORT INFORMATION
  Report Type: Report from Study
  Country: TR (occurrence: TR)
  Receive Date: 20210624
  Receipt Date: 20210624
  Transmission Date: 20210717
  Serious: Yes (Other)
  Sender: FDA-Public Use
  Company Number: TR-SUN PHARMACEUTICAL INDUSTRIES LTD-2021R1-300423

PATIENT
  Age: 6 Year
  Sex: Female

DRUGS (2)
  1. LEUPROLIDE [Suspect]
     Active Substance: LEUPROLIDE
     Indication: PRECOCIOUS PUBERTY
     Dosage: 3.75 MILLIGRAM 4?WEEKLY INJECTIONS (0.13 MG/KG) (5TH INJECTION)
     Route: 065
  2. TRIPTORELIN [Suspect]
     Active Substance: TRIPTORELIN
     Indication: PRECOCIOUS PUBERTY
     Dosage: UNK
     Route: 065

REACTIONS (3)
  - Local reaction [Unknown]
  - Pruritus [Unknown]
  - Hypersensitivity [Unknown]
